FAERS Safety Report 6687978-0 (Version None)
Quarter: 2010Q2

REPORT INFORMATION
  Report Type: 
  Country: None (occurrence: None)
  Receive Date: 20100420
  Receipt Date: 20100316
  Transmission Date: 20101027
  Serious: Yes (Other)
  Sender: FDA-Public Use
  Company Number: CHPA2010US05498

PATIENT
  Age: 76 Year
  Sex: Male
  Weight: 92.063 kg

DRUGS (7)
  1. VOLTAREN [Suspect]
     Indication: MUSCULOSKELETAL DISORDER
     Dosage: UNK, UNK
     Route: 061
  2. VOLTAREN [Suspect]
     Indication: OSTEOMALACIA
  3. VOLTAREN [Suspect]
     Indication: OSTEOARTHRITIS
  4. VOLTAREN [Suspect]
     Indication: TENDONITIS
  5. VOLTAREN [Suspect]
     Indication: MUSCULOSKELETAL DISCOMFORT
  6. VOLTAREN [Suspect]
     Indication: BACK PAIN
  7. NAPROXEN [Concomitant]

REACTIONS (5)
  - ARRHYTHMIA [None]
  - CONDITION AGGRAVATED [None]
  - DRUG ADMINISTERED AT INAPPROPRIATE SITE [None]
  - OFF LABEL USE [None]
  - WRONG TECHNIQUE IN DRUG USAGE PROCESS [None]
